FAERS Safety Report 7703131-3 (Version None)
Quarter: 2011Q3

REPORT INFORMATION
  Report Type: 
  Country: None (occurrence: None)
  Receive Date: 20110817
  Receipt Date: 20110811
  Transmission Date: 20111222
  Serious: No
  Sender: FDA-Public Use
  Company Number: KV201100164

PATIENT
  Age: 33 Year
  Sex: Female

DRUGS (1)
  1. MAKENA [Suspect]
     Indication: PREMATURE DELIVERY
     Dosage: 250 MG, ONCE WEEKLY, INTRAMUSCULAR
     Route: 030
     Dates: start: 20110101, end: 20110101

REACTIONS (7)
  - CERVICAL INCOMPETENCE [None]
  - CAESAREAN SECTION [None]
  - PREMATURE LABOUR [None]
  - VAGINAL HAEMORRHAGE [None]
  - PLACENTA PRAEVIA [None]
  - MATERNAL EXPOSURE DURING PREGNANCY [None]
  - INTRA-UTERINE DEATH [None]
